FAERS Safety Report 25927498 (Version 1)
Quarter: 2025Q4

REPORT INFORMATION
  Report Type: Spontaneous
  Country: US (occurrence: US)
  Receive Date: 20251015
  Receipt Date: 20251015
  Transmission Date: 20260118
  Serious: No
  Sender: BEIGENE
  Company Number: US-BEIGENE-BGN-2025-016332

PATIENT
  Age: 93 Year

DRUGS (1)
  1. BRUKINSA [Suspect]
     Active Substance: ZANUBRUTINIB
     Indication: Chronic lymphocytic leukaemia
     Dosage: 80 MILLIGRAM, BID

REACTIONS (1)
  - White blood cell count abnormal [Unknown]
